FAERS Safety Report 11202048 (Version 1)
Quarter: 2015Q2

REPORT INFORMATION
  Report Type: Spontaneous
  Country: US (occurrence: None)
  Receive Date: 20150608
  Receipt Date: 20150608
  Transmission Date: 20150821
  Serious: No
  Sender: FDA-Public Use
  Company Number: 2015TUS001852

PATIENT
  Age: 57 Year
  Sex: Female

DRUGS (8)
  1. CYMBALTA [Concomitant]
     Active Substance: DULOXETINE HYDROCHLORIDE
  2. ESTRADIOL (ESTRADIOL) [Concomitant]
     Active Substance: ESTRADIOL
  3. CLONAZEPAM (CLONAZEPAM) [Concomitant]
     Active Substance: CLONAZEPAM
  4. WELLBUTRIN [Concomitant]
     Active Substance: BUPROPION HYDROCHLORIDE
  5. METHYLPHENIDATE (METHYLPHENIDATE) [Concomitant]
  6. BRINTELLIX [Suspect]
     Active Substance: VORTIOXETINE HYDROBROMIDE
     Indication: MAJOR DEPRESSION
     Route: 048
     Dates: start: 20141217, end: 20150211
  7. HORMONES (HORMONES) [Concomitant]
  8. ALBUTEROL (SALBUTAMOL) [Concomitant]
     Active Substance: ALBUTEROL

REACTIONS (9)
  - Musculoskeletal stiffness [None]
  - Myalgia [None]
  - Arthralgia [None]
  - Pain [None]
  - Disturbance in attention [None]
  - Influenza like illness [None]
  - Apathy [None]
  - Asthenia [None]
  - Condition aggravated [None]

NARRATIVE: CASE EVENT DATE: 201501
